FAERS Safety Report 8975645 (Version 4)
Quarter: 2013Q1

REPORT INFORMATION
  Report Type: Report from Study
  Country: NL (occurrence: NL)
  Receive Date: 20121219
  Receipt Date: 20130114
  Transmission Date: 20140127
  Serious: Yes (Hospitalization)
  Sender: FDA-Public Use
  Company Number: NL-ROCHE-1167812

PATIENT
  Age: 63 Year
  Sex: Female
  Weight: 57 kg

DRUGS (6)
  1. RITUXIMAB [Suspect]
     Indication: MALIGNANT LYMPHOID NEOPLASM
     Dosage: DATE OF LAST DOSE PRIOR TO SAE 05/DEC/2012
     Route: 042
     Dates: start: 20121121
  2. METHOTREXATE [Suspect]
     Indication: MALIGNANT LYMPHOID NEOPLASM
     Dosage: DATE OF LAST DOSE PRIOR TO SAE 06/DEC/2012
     Route: 042
     Dates: start: 20121122
  3. TENIPOSIDE [Suspect]
     Indication: MALIGNANT LYMPHOID NEOPLASM
     Dosage: DATE OF LAST DOSE PRIOR TO SAE 24/NOV/2012
     Route: 065
     Dates: start: 20121123
  4. PREDNISOLONE [Suspect]
     Indication: MALIGNANT LYMPHOID NEOPLASM
     Dosage: DATE OF LAST DOSE PRIOR TO SAE ON 26/NOV/2012
     Route: 048
     Dates: start: 20121122
  5. CARMUSTINE [Suspect]
     Indication: MALIGNANT LYMPHOID NEOPLASM
     Dosage: DATE OF LAST DOSE PRIOR TO SAE 25/NOV/2012
     Route: 065
     Dates: start: 20121125
  6. DEXAMETHASON [Concomitant]
     Indication: BRAIN OEDEMA
     Dosage: DATE OF LAST DOSE PRIOR TO SAE 09/DEC/2012
     Route: 048
     Dates: start: 20121205

REACTIONS (1)
  - Delirium [Not Recovered/Not Resolved]
